FAERS Safety Report 6701264-1 (Version None)
Quarter: 2010Q2

REPORT INFORMATION
  Report Type: 
  Country: None (occurrence: None)
  Receive Date: 20100428
  Receipt Date: 20100421
  Transmission Date: 20101027
  Serious: Yes (Other)
  Sender: FDA-Public Use
  Company Number: IN-ALLERGAN-1005240US

PATIENT
  Age: 51 Year
  Sex: Male
  Weight: 85 kg

DRUGS (15)
  1. BLINDED DEXAMETHASONE 0.35 MG IMP [Suspect]
     Indication: DIABETIC RETINAL OEDEMA
     Dosage: UNK
     Route: 031
     Dates: start: 20100211, end: 20100211
  2. BLINDED DEXAMETHASONE 0.7 MG IMP [Suspect]
     Indication: DIABETIC RETINAL OEDEMA
     Dosage: UNK
     Route: 031
     Dates: start: 20100211, end: 20100211
  3. BLINDED INTRAVITREAL SHAM [Suspect]
     Indication: DIABETIC RETINAL OEDEMA
     Dosage: UNK
     Route: 031
     Dates: start: 20100211, end: 20100211
  4. BLINDED DEXAMETHASONE 0.35 MG IMP [Suspect]
     Dosage: UNK
     Route: 031
     Dates: start: 20090225, end: 20090225
  5. BLINDED DEXAMETHASONE 0.7 MG IMP [Suspect]
     Dosage: UNK
     Route: 031
     Dates: start: 20090225, end: 20090225
  6. BLINDED INTRAVITREAL SHAM [Suspect]
     Dosage: UNK
     Route: 031
     Dates: start: 20090225, end: 20090225
  7. BLINDED DEXAMETHASONE 0.35 MG IMP [Suspect]
     Dosage: UNK
     Route: 031
     Dates: start: 20090820, end: 20090820
  8. BLINDED DEXAMETHASONE 0.7 MG IMP [Suspect]
     Dosage: UNK
     Route: 031
     Dates: start: 20090820, end: 20090820
  9. BLINDED INTRAVITREAL SHAM [Suspect]
     Dosage: UNK
     Route: 031
     Dates: start: 20090820, end: 20090820
  10. TELMISARTAN [Concomitant]
     Indication: NEPHROPATHY
     Dosage: 80 MG, QD
     Route: 048
     Dates: start: 20080101
  11. METFORMIN [Concomitant]
     Indication: DIABETES MELLITUS
     Dosage: 1 G, BID
     Route: 048
     Dates: start: 20100218
  12. GLIMEPIRIDE [Concomitant]
     Indication: DIABETES MELLITUS
     Dosage: 3 MG, QD
     Route: 048
     Dates: start: 20100218
  13. ECOSPRIN [Concomitant]
     Indication: PROPHYLAXIS
     Dosage: 150 MG, QD
     Route: 048
     Dates: start: 20100218
  14. STATIX [Concomitant]
     Indication: DYSLIPIDAEMIA
     Dosage: UNK
     Route: 048
     Dates: start: 20100218
  15. TORSEMIDE [Concomitant]
     Indication: NEPHROPATHY
     Dosage: 40 MG, BID
     Route: 048
     Dates: start: 20100218

REACTIONS (1)
  - CATARACT OPERATION [None]
